FAERS Safety Report 7716631-7 (Version None)
Quarter: 2011Q3

REPORT INFORMATION
  Report Type: 
  Country: None (occurrence: None)
  Receive Date: 20110829
  Receipt Date: 20110818
  Transmission Date: 20111222
  Serious: Yes (Hospitalization, Other)
  Sender: FDA-Public Use
  Company Number: CA-BAXTER-2011BH027308

PATIENT
  Age: 79 Year
  Sex: Female

DRUGS (3)
  1. NUTRINEAL [Suspect]
     Indication: PERITONEAL DIALYSIS
     Route: 033
  2. DIANEAL [Suspect]
     Indication: PERITONEAL DIALYSIS
     Route: 033
  3. EXTRANEAL [Suspect]
     Indication: PERITONEAL DIALYSIS
     Route: 033

REACTIONS (6)
  - PRODUCT CONTAINER ISSUE [None]
  - INFECTIOUS PERITONITIS [None]
  - ABDOMINAL PAIN UPPER [None]
  - DIARRHOEA [None]
  - DISCOMFORT [None]
  - SEPSIS [None]
